FAERS Safety Report 8602129-0 (Version None)
Quarter: 2012Q3

REPORT INFORMATION
  Report Type: 
  Country: None (occurrence: None)
  Receive Date: 20120817
  Receipt Date: 20120806
  Transmission Date: 20120928
  Serious: Yes (Hospitalization)
  Sender: FDA-Public Use
  Company Number: NL-NOVOPROD-357512

PATIENT
  Age: 39 Year
  Sex: Male

DRUGS (5)
  1. VICTOZA [Suspect]
     Route: 065
  2. GLYBURIDE [Concomitant]
  3. LEVEMIR [Suspect]
     Indication: PRODUCT USED FOR UNKNOWN INDICATION
     Dosage: 90 IU, QD
     Route: 065
  4. LEVEMIR [Suspect]
     Dosage: 40 IU, UNK
     Route: 065
     Dates: start: 20120726
  5. VICTOZA [Suspect]
     Indication: PRODUCT USED FOR UNKNOWN INDICATION
     Dosage: UNK
     Route: 065
     Dates: end: 20120730

REACTIONS (2)
  - INFLAMMATION [None]
  - BLOOD GLUCOSE INCREASED [None]
